FAERS Safety Report 5506087-7 (Version None)
Quarter: 2007Q4

REPORT INFORMATION
  Report Type: 
  Country: None (occurrence: None)
  Receive Date: 20071101
  Receipt Date: 20071023
  Transmission Date: 20080405
  Serious: Yes (Other)
  Sender: FDA-Public Use
  Company Number: 17688

PATIENT
  Age: 60 Year
  Sex: Female
  Weight: 54.6 kg

DRUGS (6)
  1. CARBOPLATIN [Suspect]
     Indication: CHEMOTHERAPY
     Dosage: 480 MG OTH
  2. PACLITAXEL [Concomitant]
  3. DECADRON [Concomitant]
  4. ZOFRAN [Concomitant]
  5. RANDITINE [Concomitant]
  6. BENADRYL [Concomitant]

REACTIONS (5)
  - ABDOMINAL DISCOMFORT [None]
  - DYSPNOEA [None]
  - HEART RATE INCREASED [None]
  - NAUSEA [None]
  - RASH MACULAR [None]
